FAERS Safety Report 6285140-7 (Version None)
Quarter: 2009Q3

REPORT INFORMATION
  Report Type: 
  Country: None (occurrence: None)
  Receive Date: 20090727
  Receipt Date: 20090715
  Transmission Date: 20100115
  Serious: Yes (Hospitalization)
  Sender: FDA-Public Use
  Company Number: FR-PFIZER INC-2009230671

PATIENT
  Age: 78 Year

DRUGS (9)
  1. ZYVOX [Suspect]
     Indication: ENDOCARDITIS
     Dosage: 600 MG, UNK
     Route: 048
     Dates: start: 20090323, end: 20090410
  2. VANCOMYCIN [Suspect]
     Indication: HEART VALVE REPLACEMENT
     Dosage: UNK
     Route: 042
     Dates: start: 20090410, end: 20090416
  3. GENTAMICIN [Suspect]
     Indication: HEART VALVE REPLACEMENT
     Dosage: UNK
     Route: 042
     Dates: start: 20090410, end: 20090416
  4. TAVANIC [Suspect]
     Indication: ENDOCARDITIS
     Dosage: UNK
     Dates: start: 20090323, end: 20090410
  5. CALCIPARINE [Suspect]
     Indication: THROMBOSIS PROPHYLAXIS
     Dosage: UNK
     Route: 058
     Dates: start: 20090410, end: 20090411
  6. HEPARIN SODIUM [Suspect]
     Indication: EXTRACORPOREAL CIRCULATION
     Dosage: UNK
     Route: 042
     Dates: start: 20090412, end: 20090412
  7. RANITIDINE HCL [Concomitant]
     Indication: PROPHYLAXIS AGAINST GASTROINTESTINAL ULCER
     Dosage: 150 MG, 1X/DAY
     Route: 048
  8. COVERSYL [Concomitant]
     Indication: CARDIAC FAILURE
     Dosage: UNK
     Route: 048
  9. LASIX [Concomitant]
     Indication: CARDIAC FAILURE
     Dosage: UNK
     Route: 050

REACTIONS (2)
  - HAEMORRHAGE [None]
  - THROMBOCYTOPENIA [None]
